FAERS Safety Report 26205371 (Version 1)
Quarter: 2025Q4

REPORT INFORMATION
  Report Type: Spontaneous
  Country: IL (occurrence: IL)
  Receive Date: 20251228
  Receipt Date: 20251228
  Transmission Date: 20260118
  Serious: Yes (Death)
  Sender: JOHNSON AND JOHNSON
  Company Number: IL-JNJFOC-20251234076

PATIENT
  Age: 78 Year
  Sex: Male

DRUGS (1)
  1. SPRAVATO [Suspect]
     Active Substance: ESKETAMINE
     Indication: Depression
     Dosage: 9 TREATMENTS
     Route: 045

REACTIONS (2)
  - Completed suicide [Fatal]
  - Product dose omission issue [Unknown]
